FAERS Safety Report 7983697-9 (Version None)
Quarter: 2011Q4

REPORT INFORMATION
  Report Type: 
  Country: None (occurrence: None)
  Receive Date: 20111215
  Receipt Date: 20111205
  Transmission Date: 20120403
  Serious: Yes (Death, Hospitalization)
  Sender: FDA-Public Use
  Company Number: US-BAXTER-2011BH033149

PATIENT
  Sex: Male

DRUGS (4)
  1. DIANEAL [Suspect]
     Route: 033
     Dates: end: 20111108
  2. DIANEAL [Suspect]
     Route: 033
     Dates: end: 20111108
  3. DIANEAL [Suspect]
     Indication: PERITONEAL DIALYSIS
     Route: 033
     Dates: start: 20111112, end: 20111124
  4. DIANEAL [Suspect]
     Indication: PERITONEAL DIALYSIS
     Route: 033
     Dates: start: 20111112, end: 20111124

REACTIONS (3)
  - GASTROINTESTINAL HAEMORRHAGE [None]
  - FOOD POISONING [None]
  - ANAEMIA [None]
